FAERS Safety Report 5928167-4 (Version None)
Quarter: 2008Q4

REPORT INFORMATION
  Report Type: 
  Country: None (occurrence: None)
  Receive Date: 20081023
  Receipt Date: 20081014
  Transmission Date: 20090506
  Serious: Yes (Hospitalization, Other)
  Sender: FDA-Public Use
  Company Number: PHHY2008FR22339

PATIENT
  Age: 13 Year
  Sex: Male
  Weight: 57 kg

DRUGS (3)
  1. RITALIN [Suspect]
     Indication: DISTURBANCE IN ATTENTION
     Dosage: 10 MG, BID2SDO
     Dates: start: 20041228, end: 20080320
  2. RITALIN [Suspect]
     Dosage: 10 MG 1TABLET AND 1/2 TABLET TWICE A DAY
     Dates: start: 20081001
  3. RITALIN [Suspect]
     Indication: DISTURBANCE IN ATTENTION
     Dosage: 40 MG, UNK

REACTIONS (4)
  - GOUT [None]
  - HYPERURICAEMIA [None]
  - PAIN IN EXTREMITY [None]
  - SURGERY [None]
